FAERS Safety Report 8488656-8 (Version None)
Quarter: 2012Q3

REPORT INFORMATION
  Report Type: 
  Country: None (occurrence: None)
  Receive Date: 20120705
  Receipt Date: 20120628
  Transmission Date: 20120928
  Serious: Yes (Other)
  Sender: FDA-Public Use
  Company Number: JP-PFIZER INC-2012136678

PATIENT
  Age: 64 Year
  Sex: Female

DRUGS (4)
  1. ZYVOX [Suspect]
     Dosage: 600 MG, 1X/DAY
     Route: 042
  2. ZYVOX [Suspect]
     Indication: STAPHYLOCOCCAL INFECTION
     Dosage: 600 MG, 2X/DAY
     Route: 042
     Dates: start: 20120525
  3. ZYVOX [Suspect]
     Dosage: 600 MG, 1X/DAY
     Route: 042
     Dates: start: 20120625
  4. AMBISOME [Concomitant]
     Dosage: 200 MG, 1X/DAY
     Route: 042
     Dates: start: 20120605

REACTIONS (1)
  - RENAL IMPAIRMENT [None]
